FAERS Safety Report 14418078 (Version 1)
Quarter: 2018Q1

REPORT INFORMATION
  Report Type: Spontaneous
  Country: FR (occurrence: FR)
  Receive Date: 20180122
  Receipt Date: 20180122
  Transmission Date: 20180509
  Serious: Yes (Life-Threatening)
  Sender: FDA-Public Use
  Company Number: FR-ROCHE-2056159

PATIENT
  Age: 75 Year
  Sex: Male
  Weight: 83 kg

DRUGS (5)
  1. RIVOTRIL [Suspect]
     Active Substance: CLONAZEPAM
     Indication: DRUG DEPENDENCE
     Dosage: MOST RECENT DOSE ON 02/JAN/2017
     Route: 048
     Dates: start: 20170102
  2. OXYCONTIN [Suspect]
     Active Substance: OXYCODONE HYDROCHLORIDE
     Indication: PAIN
     Dosage: MOST RECENT DOSE ON 02/JAN/2017
     Route: 048
     Dates: start: 20161231
  3. SERESTA [Suspect]
     Active Substance: OXAZEPAM
     Indication: DRUG DEPENDENCE
     Dosage: MOST RECENT DOSE ON 02/JAN/2017
     Route: 048
     Dates: start: 20161230
  4. OXYNORM [Suspect]
     Active Substance: OXYCODONE HYDROCHLORIDE
     Indication: PAIN
     Dosage: MOST RECENT DOSE ON 02/JAN/2017
     Route: 048
     Dates: start: 20170101
  5. OXYNORM [Suspect]
     Active Substance: OXYCODONE HYDROCHLORIDE
     Route: 048
     Dates: start: 20161231

REACTIONS (1)
  - Respiratory distress [Recovered/Resolved]

NARRATIVE: CASE EVENT DATE: 20170102
